FAERS Safety Report 8834073 (Version 1)
Quarter: 2012Q4

REPORT INFORMATION
  Report Type: 
  Country: US (occurrence: US)
  Receive Date: 20121010
  Receipt Date: 20121010
  Transmission Date: 20130627
  Serious: Yes (Other)
  Sender: FDA-Public Use
  Company Number: US-ASTRAZENECA-2012SE75943

PATIENT
  Age: 81 Year
  Sex: Male
  Weight: 97.5 kg

DRUGS (6)
  1. NEXIUM [Suspect]
     Indication: GASTROOESOPHAGEAL REFLUX DISEASE
     Route: 048
  2. NEXIUM [Suspect]
     Indication: GASTROOESOPHAGEAL REFLUX DISEASE
     Route: 048
  3. CHEMO [Suspect]
     Route: 065
  4. UNKNOWN NAUSEA DRUG [Concomitant]
  5. UNKNOWN BLOOD PRESSURE MEDICATION [Concomitant]
  6. UNKNOWN CHOLESTEROL MEDICATION [Concomitant]

REACTIONS (7)
  - Neoplasm malignant [Unknown]
  - Lymphoma [Unknown]
  - Ulcer [Unknown]
  - Gout [Unknown]
  - Blood cholesterol [Unknown]
  - Nausea [Unknown]
  - Intentional drug misuse [Unknown]
